FAERS Safety Report 16985426 (Version 1)
Quarter: 2019Q4

REPORT INFORMATION
  Report Type: Spontaneous
  Country: CN (occurrence: CN)
  Receive Date: 20191101
  Receipt Date: 20191101
  Transmission Date: 20200122
  Serious: Yes (Hospitalization, Other)
  Sender: FDA-Public Use
  Company Number: CN-SA-2019SA299769

PATIENT
  Age: 78 Year
  Sex: Male

DRUGS (1)
  1. CLEXANE [Suspect]
     Active Substance: ENOXAPARIN SODIUM
     Dosage: 4000 IU, UNK
     Route: 058
     Dates: start: 20191023, end: 20191023

REACTIONS (17)
  - Altered state of consciousness [Recovered/Resolved]
  - Multiple organ dysfunction syndrome [Unknown]
  - Tachypnoea [Not Recovered/Not Resolved]
  - Oliguria [Unknown]
  - Shock [Not Recovered/Not Resolved]
  - Pulmonary embolism [Unknown]
  - Coagulopathy [Unknown]
  - Metabolic acidosis [Unknown]
  - Heart rate increased [Not Recovered/Not Resolved]
  - Renal impairment [Unknown]
  - Asthma [Unknown]
  - Mydriasis [Unknown]
  - White blood cell count increased [Unknown]
  - Infection [Unknown]
  - Thrombosis [Unknown]
  - Laryngeal oedema [Unknown]
  - Poor peripheral circulation [Unknown]

NARRATIVE: CASE EVENT DATE: 20191023
